FAERS Safety Report 5907313-2 (Version None)
Quarter: 2008Q4

REPORT INFORMATION
  Report Type: 
  Country: None (occurrence: None)
  Receive Date: 20081003
  Receipt Date: 20081001
  Transmission Date: 20090506
  Serious: Yes (Death, Hospitalization)
  Sender: FDA-Public Use
  Company Number: PHHY2008JP23198

PATIENT
  Age: 44 Year
  Sex: Female

DRUGS (2)
  1. CYCLOSPORINE [Suspect]
     Indication: STEM CELL TRANSPLANT
     Dosage: UNK
     Dates: end: 20070101
  2. CYCLOSPORINE [Suspect]
     Dosage: UNK
     Dates: start: 20070101

REACTIONS (3)
  - HISTIOCYTOSIS HAEMATOPHAGIC [None]
  - PERIPHERAL T-CELL LYMPHOMA UNSPECIFIED [None]
  - SEPTIC SHOCK [None]
